FAERS Safety Report 6250300-8 (Version None)
Quarter: 2009Q2

REPORT INFORMATION
  Report Type: 
  Country: None (occurrence: None)
  Receive Date: 20090626
  Receipt Date: 20090626
  Transmission Date: 20091009
  Serious: Yes (Life-Threatening, Other)
  Sender: FDA-Public Use
  Company Number: None

PATIENT
  Age: 46 Year
  Sex: Female
  Weight: 92.9874 kg

DRUGS (4)
  1. ANEFRIN [Suspect]
     Indication: DEPRESSION
     Dosage: 2001 - 1997
  2. ZYPREXA [Suspect]
     Indication: SCHIZOPHRENIA
     Dates: start: 20010101, end: 20090101
  3. ZOLOFT [Suspect]
  4. TRIPLE OINTMENT [Concomitant]

REACTIONS (6)
  - APPLICATION SITE BURN [None]
  - DRUG INEFFECTIVE [None]
  - NASAL DISCOMFORT [None]
  - NASOPHARYNGITIS [None]
  - PRODUCT TAMPERING [None]
  - SCAR [None]
